FAERS Safety Report 20876442 (Version 2)
Quarter: 2022Q3

REPORT INFORMATION
  Report Type: Spontaneous
  Country: DE (occurrence: DE)
  Receive Date: 20220526
  Receipt Date: 20220709
  Transmission Date: 20221027
  Serious: Yes (Other)
  Sender: FDA-Public Use
  Company Number: DE-ALKEM LABORATORIES LIMITED-DE-ALKEM-2022-04664

PATIENT
  Age: 26 Year
  Sex: Male

DRUGS (1)
  1. CEFUROXIME AXETIL [Suspect]
     Active Substance: CEFUROXIME AXETIL
     Indication: Product used for unknown indication
     Dosage: UNK, EVERY 1 DAY
     Route: 065

REACTIONS (3)
  - Intestinal haemorrhage [Unknown]
  - Colitis ulcerative [Unknown]
  - Haemorrhoids [Unknown]
